FAERS Safety Report 7251412-2 (Version None)
Quarter: 2011Q1

REPORT INFORMATION
  Report Type: 
  Country: None (occurrence: None)
  Receive Date: 20110128
  Receipt Date: 20110126
  Transmission Date: 20110831
  Serious: Yes (Life-Threatening, Hospitalization, Disabling)
  Sender: FDA-Public Use
  Company Number: DE-B.I. PHARMACEUTICALS,INC./RIDGEFIELD-2011-DE-00663DE

PATIENT
  Age: 68 Year
  Sex: Male
  Weight: 98 kg

DRUGS (3)
  1. JODTHYROX MERCK SERONO [Concomitant]
     Dosage: 131 MCG
  2. PRADAXA [Suspect]
     Indication: HIP ARTHROPLASTY
     Dosage: 220 MG
  3. LEXOTANIL [Concomitant]

REACTIONS (2)
  - ATRIAL FIBRILLATION [None]
  - MYOCARDIAL INFARCTION [None]
